FAERS Safety Report 12489842 (Version 1)
Quarter: 2016Q2

REPORT INFORMATION
  Report Type: Report from Study
  Country: BR (occurrence: BR)
  Receive Date: 20160622
  Receipt Date: 20160622
  Transmission Date: 20160815
  Serious: Yes (Other)
  Sender: FDA-Public Use
  Company Number: BR-JNJFOC-20160615995

PATIENT
  Age: 25 Year
  Sex: Male
  Weight: 58 kg

DRUGS (1)
  1. SIMPONI [Suspect]
     Active Substance: GOLIMUMAB
     Indication: RHEUMATOID ARTHRITIS
     Route: 058
     Dates: start: 20140103, end: 20160414

REACTIONS (4)
  - Arthralgia [Unknown]
  - Spinal pain [Unknown]
  - Neck pain [Unknown]
  - Dysentery [Unknown]

NARRATIVE: CASE EVENT DATE: 201603
